FAERS Safety Report 7703814-5 (Version None)
Quarter: 2011Q3

REPORT INFORMATION
  Report Type: 
  Country: None (occurrence: None)
  Receive Date: 20110823
  Receipt Date: 20110811
  Transmission Date: 20111222
  Serious: Yes (Other)
  Sender: FDA-Public Use
  Company Number: US-ALLERGAN-1110867US

PATIENT
  Sex: Female

DRUGS (3)
  1. XALATAN [Concomitant]
     Dosage: UNK
     Route: 047
  2. TIMOLOL MALEATE [Concomitant]
  3. ALPHAGAN [Suspect]
     Indication: GLAUCOMA
     Dosage: 2 GTT, TID
     Route: 047

REACTIONS (2)
  - BLINDNESS [None]
  - INAPPROPRIATE SCHEDULE OF DRUG ADMINISTRATION [None]
